FAERS Safety Report 21693803 (Version 1)
Quarter: 2022Q4

REPORT INFORMATION
  Report Type: Report from Study
  Country: AR (occurrence: AR)
  Receive Date: 20221207
  Receipt Date: 20221207
  Transmission Date: 20230112
  Serious: Yes (Hospitalization)
  Sender: FDA-Public Use
  Company Number: AR-AMRYT PHARMACEUTICALS DAC-AEGR006153

PATIENT

DRUGS (1)
  1. MYALEPT [Suspect]
     Active Substance: METRELEPTIN
     Indication: Lipodystrophy acquired
     Dosage: 1 MILLILITER, QD

REACTIONS (1)
  - Infection [Unknown]

NARRATIVE: CASE EVENT DATE: 20221125
